FAERS Safety Report 4870247-9 (Version None)
Quarter: 2006Q1

REPORT INFORMATION
  Report Type: 
  Country: None (occurrence: None)
  Receive Date: 20060102
  Receipt Date: 20051219
  Transmission Date: 20060701
  Serious: Yes (Hospitalization)
  Sender: FDA-Public Use
  Company Number: AU-ROCHE-428976

PATIENT
  Age: 79 Year
  Sex: Female
  Weight: 65 kg

DRUGS (3)
  1. XELODA [Suspect]
     Indication: DRUG USE FOR UNKNOWN INDICATION
     Dosage: DOSING FREQUENCY: CYCLICAL.
     Route: 048
     Dates: end: 20040503
  2. PYRIDOXINE HYDROCHLORIDE INJ [Suspect]
     Indication: DRUG USE FOR UNKNOWN INDICATION
     Route: 065
     Dates: end: 20040503
  3. BONEFOS [Suspect]
     Indication: OSTEOPOROSIS
     Route: 048

REACTIONS (4)
  - OEDEMA [None]
  - RASH ERYTHEMATOUS [None]
  - RASH GENERALISED [None]
  - SKIN EXFOLIATION [None]
